FAERS Safety Report 18443975 (Version 1)
Quarter: 2020Q4

REPORT INFORMATION
  Report Type: Spontaneous
  Country: CA (occurrence: CA)
  Receive Date: 20201030
  Receipt Date: 20201030
  Transmission Date: 20210114
  Serious: Yes (Other)
  Sender: FDA-Public Use
  Company Number: CA-JNJFOC-20201044762

PATIENT
  Age: 44 Year
  Sex: Male

DRUGS (25)
  1. PROCTOSEDYL [Suspect]
     Active Substance: DIBUCAINE HYDROCHLORIDE\HYDROCORTISONE
     Indication: HAEMORRHOIDS
     Route: 054
  2. CEFTRIAXONE SODIUM. [Concomitant]
     Active Substance: CEFTRIAXONE SODIUM
     Indication: SKIN TEST
     Route: 065
  3. GRAMICIDIN W/NEOMYCIN/NYSTATIN/TRIA/02672101/ [Concomitant]
     Indication: SKIN TEST
     Route: 065
  4. TRIAMCINOLONE ACETONIDE. [Concomitant]
     Active Substance: TRIAMCINOLONE ACETONIDE
     Indication: SKIN TEST
     Route: 014
  5. DIBUCAINE HYDROCHLORIDE [Concomitant]
     Active Substance: DIBUCAINE HYDROCHLORIDE
     Indication: SKIN TEST
     Route: 065
  6. HYDROCORTISONE. [Concomitant]
     Active Substance: HYDROCORTISONE
     Route: 065
  7. THIRAM [Concomitant]
     Indication: SKIN TEST
     Route: 065
  8. BENADRYL [Concomitant]
     Active Substance: DIPHENHYDRAMINE HYDROCHLORIDE
     Indication: SKIN TEST
     Route: 061
  9. BUDESONIDE. [Concomitant]
     Active Substance: BUDESONIDE
     Indication: SKIN TEST
     Route: 065
  10. SANDOZ PROCTOMYXIN HC [Concomitant]
     Indication: SKIN TEST
     Route: 065
  11. TIXOCORTOL PIVALATE [Concomitant]
     Active Substance: TIXOCORTOL PIVALATE
     Indication: SKIN TEST
     Route: 065
  12. CLARITIN [Suspect]
     Active Substance: LORATADINE
     Indication: PRURITUS
     Route: 065
  13. ALCLOMETASONE DIPROPIONATE. [Concomitant]
     Active Substance: ALCLOMETASONE DIPROPIONATE
     Indication: SKIN TEST
     Route: 065
  14. BACITRACIN. [Concomitant]
     Active Substance: BACITRACIN
     Indication: SKIN TEST
     Route: 065
  15. BENZOPHENONE [Concomitant]
     Active Substance: BENZOPHENONE
     Indication: SKIN TEST
     Route: 065
  16. CHLORHEXIDINE GLUCONATE. [Concomitant]
     Active Substance: CHLORHEXIDINE GLUCONATE
     Indication: SKIN TEST
     Route: 065
  17. KANAMYCIN SULFATE [Concomitant]
     Active Substance: KANAMYCIN SULFATE
     Indication: SKIN TEST
     Route: 065
  18. NEOMYCIN SULFATE. [Concomitant]
     Active Substance: NEOMYCIN SULFATE
     Indication: SKIN TEST
     Route: 065
  19. ETHYLENEDIAMINE DIHYDROCHLORIDE [Concomitant]
     Active Substance: ETHYLENEDIAMINE DIHYDROCHLORIDE
     Indication: SKIN TEST
     Route: 065
  20. FRAMYCETIN SULFATE [Concomitant]
     Active Substance: FRAMYCETIN SULFATE
     Indication: SKIN TEST
     Route: 065
  21. GUANIDINE [Concomitant]
     Active Substance: GUANIDINE
     Indication: SKIN TEST
     Route: 065
  22. HYDROCORTISONE. [Concomitant]
     Active Substance: HYDROCORTISONE
     Indication: SKIN TEST
     Route: 065
  23. LANOLIN. [Concomitant]
     Active Substance: LANOLIN
     Indication: SKIN TEST
     Route: 065
  24. REACTINE (CETIRIZINE DIHYDROCHLORIDE) [Suspect]
     Active Substance: CETIRIZINE HYDROCHLORIDE
     Indication: PRURITUS
     Route: 065
  25. GENTAMICIN SULFATE. [Concomitant]
     Active Substance: GENTAMICIN SULFATE
     Indication: SKIN TEST
     Route: 065

REACTIONS (2)
  - Dermatitis contact [Unknown]
  - Therapeutic product cross-reactivity [Unknown]
